FAERS Safety Report 8240409-1 (Version None)
Quarter: 2012Q1

REPORT INFORMATION
  Report Type: 
  Country: None (occurrence: None)
  Receive Date: 20120313
  Receipt Date: 20110727
  Transmission Date: 20120608
  Serious: Yes (Other)
  Sender: FDA-Public Use
  Company Number: 332948

PATIENT
  Age: 72 Year
  Sex: Male

DRUGS (3)
  1. NOVOSEVEN RT [Suspect]
     Indication: FACTOR VII DEFICIENCY
     Dosage: , INTRAVENOUS
     Route: 042
  2. NOVOSEVEN RT [Suspect]
     Indication: ACQUIRED HAEMOPHILIA
     Dosage: , INTRAVENOUS
     Route: 042
  3. PLAVIX [Concomitant]

REACTIONS (1)
  - DRUG INEFFECTIVE [None]
